FAERS Safety Report 19880375 (Version 1)
Quarter: 2021Q3

REPORT INFORMATION
  Report Type: Spontaneous
  Country: AU (occurrence: AU)
  Receive Date: 20210924
  Receipt Date: 20210924
  Transmission Date: 20211014
  Serious: No
  Sender: FDA-Public Use
  Company Number: AU-GLAXOSMITHKLINE-AU2021199686

PATIENT

DRUGS (1)
  1. SOTROVIMAB FOR COVID?19 BY INTERIM ORDER/EMERGENCY USE AUTHORIZATION [Suspect]
     Active Substance: SOTROVIMAB
     Indication: PRODUCT USED FOR UNKNOWN INDICATION
     Dosage: UNK

REACTIONS (1)
  - Product storage error [Unknown]

NARRATIVE: CASE EVENT DATE: 20210920
